FAERS Safety Report 10064085 (Version 1)
Quarter: 2013Q4

REPORT INFORMATION
  Report Type: Spontaneous
  Country: US (occurrence: None)
  Receive Date: 20131104
  Receipt Date: 20131104
  Transmission Date: 20140711
  Serious: Yes (Other)
  Sender: FDA-Public Use
  Company Number: AE-13-001

PATIENT
  Age: 26 Year
  Sex: Female

DRUGS (1)
  1. LAVIV [Suspect]
     Dosage: 2ND DOSE, DERMIS
     Dates: start: 20130611

REACTIONS (2)
  - Injection site discolouration [None]
  - Injection site necrosis [None]
